FAERS Safety Report 9636495 (Version 2)
Quarter: 2013Q4

REPORT INFORMATION
  Report Type: Spontaneous
  Country: US (occurrence: None)
  Receive Date: 20131017
  Receipt Date: 20131108
  Transmission Date: 20140711
  Serious: Yes (Death, Hospitalization)
  Sender: FDA-Public Use
  Company Number: ACO_39003_2013

PATIENT
  Age: 53 Year
  Sex: Female

DRUGS (2)
  1. AMPYRA [Suspect]
     Indication: GAIT DISTURBANCE
     Route: 048
  2. TYSABRI (NATALIZUMAB) [Concomitant]

REACTIONS (3)
  - Multiple sclerosis [None]
  - Disease complication [None]
  - Pneumonia aspiration [None]
